FAERS Safety Report 5126351-3 (Version None)
Quarter: 2006Q4

REPORT INFORMATION
  Report Type: 
  Country: None (occurrence: None)
  Receive Date: 20061010
  Receipt Date: 20060926
  Transmission Date: 20070319
  Serious: Yes (Other)
  Sender: FDA-Public Use
  Company Number: 2006116862

PATIENT
  Age: 8 Year
  Sex: Female
  Weight: 28.123 kg

DRUGS (4)
  1. NORVASC [Suspect]
     Indication: RENAL DISORDER
     Dosage: 10 MG (5 MG, FREQUENCY: BID INTERVAL ) DAILY
     Dates: start: 20060514
  2. ENALAPRIL MALEATE [Concomitant]
  3. ALBUTEROL [Concomitant]
  4. MECLIZINE [Concomitant]

REACTIONS (2)
  - POLLAKIURIA [None]
  - URINARY INCONTINENCE [None]
